FAERS Safety Report 18705331 (Version 2)
Quarter: 2021Q1

REPORT INFORMATION
  Report Type: Spontaneous
  Country: US (occurrence: US)
  Receive Date: 20210106
  Receipt Date: 20210111
  Transmission Date: 20210419
  Serious: No
  Sender: FDA-Public Use
  Company Number: US-SA-2021SA002621

PATIENT
  Age: 56 Year
  Sex: Male

DRUGS (1)
  1. DUPIXENT [Suspect]
     Active Substance: DUPILUMAB
     Dosage: 300 MG, OTHER
     Route: 058
     Dates: start: 20201028

REACTIONS (3)
  - Arthralgia [Unknown]
  - Periorbital swelling [Unknown]
  - Periorbital pain [Unknown]

NARRATIVE: CASE EVENT DATE: 2020
